FAERS Safety Report 5160149-5 (Version None)
Quarter: 2006Q4

REPORT INFORMATION
  Report Type: 
  Country: None (occurrence: None)
  Receive Date: 20061129
  Receipt Date: 20061121
  Transmission Date: 20070319
  Serious: Yes (Disabling)
  Sender: FDA-Public Use
  Company Number: US-MERCK-0611USA06087

PATIENT
  Sex: Male

DRUGS (6)
  1. ZETIA [Suspect]
     Indication: DIABETES MELLITUS
     Route: 048
  2. ZETIA [Suspect]
     Indication: CORONARY ARTERY DISEASE
     Route: 048
  3. GLIPIZIDE [Concomitant]
     Route: 065
  4. METFORMIN [Concomitant]
     Route: 065
  5. ATENOLOL [Concomitant]
     Route: 065
  6. HYDROCHLOROTHIAZIDE [Concomitant]
     Route: 065

REACTIONS (2)
  - DEPRESSION [None]
  - FATIGUE [None]
